FAERS Safety Report 25987088 (Version 1)
Quarter: 2025Q4

REPORT INFORMATION
  Report Type: Spontaneous
  Country: US (occurrence: US)
  Receive Date: 20251103
  Receipt Date: 20251103
  Transmission Date: 20260117
  Serious: Yes (Hospitalization, Other)
  Sender: Haleon PLC
  Company Number: US-HALEON-2271124

PATIENT
  Age: 5 Year
  Sex: Female

DRUGS (1)
  1. ACETAMINOPHEN [Suspect]
     Active Substance: ACETAMINOPHEN
     Indication: Product used for unknown indication
     Route: 048

REACTIONS (13)
  - Acute hepatic failure [Recovering/Resolving]
  - Vomiting [Recovering/Resolving]
  - Chills [Recovering/Resolving]
  - Condition aggravated [Recovering/Resolving]
  - Gastrointestinal disorder [Recovering/Resolving]
  - Coagulopathy [Recovering/Resolving]
  - Encephalopathy [Recovering/Resolving]
  - Brain oedema [Recovering/Resolving]
  - Intracranial pressure increased [Recovering/Resolving]
  - Overdose [Unknown]
  - Jaundice [Recovering/Resolving]
  - Hypoglycaemia [Recovering/Resolving]
  - Accidental exposure to product [Unknown]
